FAERS Safety Report 5906962-5 (Version None)
Quarter: 2008Q4

REPORT INFORMATION
  Report Type: 
  Country: None (occurrence: None)
  Receive Date: 20081002
  Receipt Date: 20081002
  Transmission Date: 20090506
  Serious: No
  Sender: FDA-Public Use
  Company Number: None

PATIENT
  Age: 77 Year
  Weight: 74.8435 kg

DRUGS (4)
  1. COMBIGAN [Suspect]
     Indication: GLAUCOMA
     Dosage: 1 DROP EACH EYE  EVERY 12 HOURS  INTRAOCULAR
     Route: 031
     Dates: start: 20071228, end: 20080529
  2. FOSAMAX PLUS D [Concomitant]
  3. QUINAPRIL [Concomitant]
  4. XALATAN [Concomitant]

REACTIONS (3)
  - DEPRESSION [None]
  - HYPOPHAGIA [None]
  - MALAISE [None]
